FAERS Safety Report 19639323 (Version 2)
Quarter: 2021Q4

REPORT INFORMATION
  Report Type: Report from Study
  Country: RO (occurrence: RO)
  Receive Date: 20210730
  Receipt Date: 20211015
  Transmission Date: 20220303
  Serious: Yes (Hospitalization)
  Sender: FDA-Public Use
  Company Number: RO-TAKEDA-2020TUS049205

PATIENT
  Age: 63 Year
  Sex: Male

DRUGS (8)
  1. IXAZOMIB [Suspect]
     Active Substance: IXAZOMIB
     Indication: Plasma cell myeloma
     Dosage: UNK
     Route: 048
     Dates: start: 20201030, end: 20210619
  2. DEXAMETHASONE [Suspect]
     Active Substance: DEXAMETHASONE
     Indication: Plasma cell myeloma
     Dosage: UNK
     Route: 065
     Dates: start: 20201030, end: 20210619
  3. LENALIDOMIDE [Suspect]
     Active Substance: LENALIDOMIDE
     Indication: Plasma cell myeloma
     Dosage: UNK
     Route: 065
     Dates: start: 20201030, end: 20210619
  4. PLAVIX [Concomitant]
     Active Substance: CLOPIDOGREL BISULFATE
     Indication: Cardiac disorder
     Dosage: UNK, QD
     Route: 065
  5. METOPROLOL TARTRATE [Concomitant]
     Active Substance: METOPROLOL TARTRATE
     Indication: Cardiac disorder
     Dosage: 100 MILLIGRAM, QD
     Route: 065
  6. CONTROLOC [Concomitant]
     Active Substance: PANTOPRAZOLE SODIUM
     Indication: Cardiac disorder
     Dosage: UNK, QD
     Route: 065
  7. SYMPTOMAL [Concomitant]
     Indication: Cardiac disorder
     Dosage: UNK, QD
     Route: 065
  8. DIUREX A [Concomitant]
     Indication: Cardiac disorder
     Dosage: UNK, QD
     Route: 065

REACTIONS (3)
  - Chest pain [Not Recovered/Not Resolved]
  - Nausea [Recovered/Resolved]
  - Off label use [Unknown]

NARRATIVE: CASE EVENT DATE: 20210719
